FAERS Safety Report 17958411 (Version 1)
Quarter: 2020Q2

REPORT INFORMATION
  Report Type: Other
  Country: FI (occurrence: FI)
  Receive Date: 20200629
  Receipt Date: 20200629
  Transmission Date: 20200714
  Serious: Yes (Hospitalization, Other)
  Sender: FDA-Public Use
  Company Number: FI-DEXPHARM-20200535

PATIENT
  Age: 29 Year
  Sex: Female

DRUGS (2)
  1. LEVETIRACETAM. [Suspect]
     Active Substance: LEVETIRACETAM
     Dosage: 500 MG TWO TIMES PER DAY
  2. LAMOTRIGINE. [Suspect]
     Active Substance: LAMOTRIGINE
     Dosage: 150 MG TWO TIMES PER DAY

REACTIONS (2)
  - Drug interaction [Recovering/Resolving]
  - Hypogammaglobulinaemia [Recovering/Resolving]
